FAERS Safety Report 19760642 (Version 3)
Quarter: 2021Q4

REPORT INFORMATION
  Report Type: Spontaneous
  Country: US (occurrence: US)
  Receive Date: 20210830
  Receipt Date: 20211125
  Transmission Date: 20220304
  Serious: Yes (Other)
  Sender: FDA-Public Use
  Company Number: US-JNJFOC-20210853410

PATIENT
  Age: 35 Year
  Sex: Female

DRUGS (6)
  1. ELMIRON [Suspect]
     Active Substance: PENTOSAN POLYSULFATE SODIUM
     Indication: Cystitis interstitial
     Route: 048
     Dates: start: 200501, end: 202006
  2. DETROL [Concomitant]
     Active Substance: TOLTERODINE TARTRATE
     Dates: start: 201010, end: 201702
  3. TOLTERODINE [Concomitant]
     Active Substance: TOLTERODINE
     Dates: start: 201604, end: 202003
  4. LEVOTHYROXINE [Concomitant]
     Active Substance: LEVOTHYROXINE
     Dates: start: 201606, end: 202105
  5. AMITRIPTYLINE [Concomitant]
     Active Substance: AMITRIPTYLINE
     Dates: start: 202012, end: 202104
  6. SOLIFENACIN [Concomitant]
     Active Substance: SOLIFENACIN
     Dates: start: 202012, end: 202108

REACTIONS (4)
  - Macular degeneration [Not Recovered/Not Resolved]
  - Retinal dystrophy [Unknown]
  - Off label use [Unknown]
  - Product use issue [Unknown]

NARRATIVE: CASE EVENT DATE: 20050101
